FAERS Safety Report 11312929 (Version 1)
Quarter: 2015Q3

REPORT INFORMATION
  Report Type: Spontaneous
  Country: US (occurrence: None)
  Receive Date: 20150724
  Receipt Date: 20150724
  Transmission Date: 20151125
  Serious: Yes (Life-Threatening)
  Sender: FDA-Public Use
  Company Number: None

PATIENT
  Age: 70 Year
  Sex: Female
  Weight: 60.33 kg

DRUGS (12)
  1. DULOXENTINE [Concomitant]
  2. ESZOPICLONE. [Concomitant]
     Active Substance: ESZOPICLONE
  3. B-13 [Concomitant]
  4. CIMZIA [Suspect]
     Active Substance: CERTOLIZUMAB PEGOL
     Indication: ANKYLOSING SPONDYLITIS
     Dosage: PREFILLED 2X200 MG/ML, GIVEN INTO/UNDER THE SKIN
     Dates: start: 20141212, end: 20150710
  5. CENTREX MULTI VITAMIN [Concomitant]
  6. ATORVASTATIN [Concomitant]
     Active Substance: ATORVASTATIN
  7. TIZANDINE (TIZANDINE HYDROCHLORIDE) [Concomitant]
     Active Substance: TIZANIDINE HYDROCHLORIDE
  8. COQ10 [Concomitant]
     Active Substance: UBIDECARENONE
  9. MAGNESIUM [Concomitant]
     Active Substance: MAGNESIUM
  10. FISH OIL [Concomitant]
     Active Substance: FISH OIL
  11. CALCIUM [Concomitant]
     Active Substance: CALCIUM
  12. ENBREL [Suspect]
     Active Substance: ETANERCEPT
     Indication: ANKYLOSING SPONDYLITIS
     Dosage: 50 MG/ML 1 INJECTION WEEK, GIVEN INTO/UNDER THE SKIN
     Dates: start: 20111101, end: 20141201

REACTIONS (1)
  - Malignant melanoma [None]

NARRATIVE: CASE EVENT DATE: 20150710
